FAERS Safety Report 4965440-0 (Version None)
Quarter: 2006Q2

REPORT INFORMATION
  Report Type: 
  Country: None (occurrence: None)
  Receive Date: 20060406
  Receipt Date: 20060329
  Transmission Date: 20061013
  Serious: Yes (Hospitalization)
  Sender: FDA-Public Use
  Company Number: FR-MERCK-0603FRA00112

PATIENT
  Age: 87 Year
  Sex: Female
  Weight: 57 kg

DRUGS (12)
  1. PRIMAXIN [Suspect]
     Indication: ESCHERICHIA URINARY TRACT INFECTION
     Route: 042
     Dates: start: 20060113, end: 20060114
  2. CEFTRIAXONE SODIUM [Suspect]
     Indication: ESCHERICHIA URINARY TRACT INFECTION
     Route: 042
     Dates: start: 20060112, end: 20060112
  3. CIPROFLOXACIN HYDROCHLORIDE [Concomitant]
     Indication: ESCHERICHIA URINARY TRACT INFECTION
     Route: 048
     Dates: start: 20060113, end: 20060118
  4. ACENOCOUMAROL [Concomitant]
     Indication: THROMBOSIS PROPHYLAXIS
     Route: 048
     Dates: end: 20060113
  5. ACENOCOUMAROL [Concomitant]
     Route: 048
     Dates: start: 20060119
  6. PAROXETINE HYDROCHLORIDE [Concomitant]
     Indication: DEPRESSION
     Route: 065
  7. FUROSEMIDE [Concomitant]
     Route: 048
     Dates: end: 20060113
  8. AMLODIPINE BESYLATE [Concomitant]
     Route: 048
  9. BENSERAZIDE HYDROCHLORIDE AND LEVODOPA [Concomitant]
     Indication: PARKINSON'S DISEASE
     Route: 048
  10. BROMAZEPAM [Concomitant]
     Indication: ANXIETY
     Route: 048
  11. ZOPICLONE [Concomitant]
     Indication: INSOMNIA
     Route: 048
  12. ACETAMINOPHEN [Concomitant]
     Route: 048

REACTIONS (1)
  - INTERNATIONAL NORMALISED RATIO INCREASED [None]
